FAERS Safety Report 8654645 (Version 2)
Quarter: 2012Q4

REPORT INFORMATION
  Report Type: 
  Country: US (occurrence: US)
  Receive Date: 20120709
  Receipt Date: 20121015
  Transmission Date: 20130627
  Serious: Yes (Other)
  Sender: FDA-Public Use
  Company Number: US-PFIZER INC-2012161724

PATIENT
  Age: 52 Year
  Sex: Female
  Weight: 47.17 kg

DRUGS (5)
  1. CORTEF [Suspect]
     Indication: ADRENAL INSUFFICIENCY
     Dosage: 100 mg, daily
     Dates: start: 2007
  2. CORTEF [Suspect]
     Indication: STEROID THERAPY
     Dosage: 20 mg, UNK
     Route: 048
     Dates: start: 20120618
  3. LEVOXYL [Concomitant]
     Indication: HYPOTHYROIDISM
     Dosage: 0.5 mg, daily
     Dates: start: 2007
  4. CYTOMEL [Concomitant]
     Indication: HYPOTHYROIDISM
     Dosage: 5 ug, UNK
  5. ESTRACE [Concomitant]
     Indication: MENOPAUSE
     Dosage: 1 mg, 1x/day

REACTIONS (3)
  - Pharyngitis streptococcal [Recovered/Resolved]
  - Herpes zoster [Recovered/Resolved]
  - Drug ineffective [Recovered/Resolved]
